FAERS Safety Report 18141514 (Version 2)
Quarter: 2020Q4

REPORT INFORMATION
  Report Type: Spontaneous
  Country: FR (occurrence: FR)
  Receive Date: 20200812
  Receipt Date: 20201109
  Transmission Date: 20210113
  Serious: Yes (Life-Threatening, Hospitalization, Other)
  Sender: FDA-Public Use
  Company Number: FR-AMGEN-FRASP2020127174

PATIENT
  Age: 72 Year
  Sex: Female
  Weight: 93 kg

DRUGS (9)
  1. TWYNSTA [Concomitant]
     Active Substance: AMLODIPINE BESYLATE\TELMISARTAN
     Indication: HYPERTENSION
     Dosage: 80 MILLIGRAM, QD, (80 MG/10 MG)
  2. VECTIBIX [Suspect]
     Active Substance: PANITUMUMAB
     Indication: COLON CANCER METASTATIC
     Dosage: 6 MILLIGRAM/KILOGRAM
     Route: 065
     Dates: start: 20190905, end: 2019
  3. TAHOR [Concomitant]
     Active Substance: ATORVASTATIN CALCIUM
     Indication: HYPERTENSION
     Dosage: 10 MILLIGRAM, QD
  4. 5-FU [FLUOROURACIL] [Concomitant]
     Active Substance: FLUOROURACIL
     Indication: COLON CANCER METASTATIC
     Dosage: 400 MILLIGRAM/SQ. METER
     Route: 040
     Dates: start: 20190822
  5. TENORETIC [Suspect]
     Active Substance: ATENOLOL\CHLORTHALIDONE
     Indication: HYPERTENSION
     Dosage: 50 MILLIGRAM, QD, (50 MG/12.5 MG)
     Route: 065
  6. FOLINIC ACID [Concomitant]
     Active Substance: LEUCOVORIN
     Indication: COLON CANCER METASTATIC
     Dosage: UNK
     Dates: start: 20190822
  7. LEVOTHYROX [Concomitant]
     Active Substance: LEVOTHYROXINE
     Dosage: 87.7 MICROGRAM, QD
  8. VECTIBIX [Suspect]
     Active Substance: PANITUMUMAB
     Dosage: UNK, (LOWER DOSE THAN IN THE PREVIOUS ROUND)
     Route: 065
     Dates: start: 20190919
  9. OXALIPLATIN. [Concomitant]
     Active Substance: OXALIPLATIN
     Indication: COLON CANCER METASTATIC
     Dosage: 85 MILLIGRAM/SQ. METER
     Dates: start: 20190822

REACTIONS (7)
  - Hypokalaemia [Unknown]
  - Laryngospasm [Unknown]
  - Hypomagnesaemia [Unknown]
  - Respiratory distress [Unknown]
  - Hypocalcaemia [Recovered/Resolved]
  - Weight decreased [Unknown]
  - Drug intolerance [Unknown]

NARRATIVE: CASE EVENT DATE: 20190917
